FAERS Safety Report 8013113-2 (Version None)
Quarter: 2011Q4

REPORT INFORMATION
  Report Type: 
  Country: None (occurrence: None)
  Receive Date: 20111229
  Receipt Date: 20111221
  Transmission Date: 20120403
  Serious: Yes (Hospitalization)
  Sender: FDA-Public Use
  Company Number: US-AMGEN-USASP2011068325

PATIENT
  Age: 52 Year
  Sex: Female

DRUGS (1)
  1. ENBREL [Suspect]
     Indication: RHEUMATOID ARTHRITIS
     Dosage: 50 MG, QWK
     Dates: start: 20101215

REACTIONS (10)
  - INCISION SITE INFECTION [None]
  - DIARRHOEA [None]
  - ARTHRALGIA [None]
  - RHEUMATOID ARTHRITIS [None]
  - JOINT INJURY [None]
  - ECZEMA [None]
  - FALL [None]
  - PAIN [None]
  - STAPHYLOCOCCAL INFECTION [None]
  - PSORIASIS [None]
